FAERS Safety Report 25234437 (Version 1)
Quarter: 2025Q2

REPORT INFORMATION
  Report Type: Spontaneous
  Country: US (occurrence: US)
  Receive Date: 20250424
  Receipt Date: 20250424
  Transmission Date: 20250716
  Serious: No
  Sender: MERCK SHARP & DOHME LLC
  Company Number: US-009507513-2277137

PATIENT

DRUGS (2)
  1. PEMBROLIZUMAB [Suspect]
     Active Substance: PEMBROLIZUMAB
     Indication: Endometrial cancer
  2. LENVIMA [Suspect]
     Active Substance: LENVATINIB
     Indication: Endometrial cancer
     Dates: start: 20250321

REACTIONS (6)
  - Hepatic enzyme increased [Unknown]
  - Platelet count decreased [Recovered/Resolved]
  - Dry skin [Unknown]
  - Pain in extremity [Unknown]
  - Hyperkeratosis [Unknown]
  - Rash [Unknown]

NARRATIVE: CASE EVENT DATE: 20250101
